FAERS Safety Report 22639875 (Version 2)
Quarter: 2023Q2

REPORT INFORMATION
  Report Type: Report from Study
  Country: US (occurrence: US)
  Receive Date: 20230626
  Receipt Date: 20230629
  Transmission Date: 20230721
  Serious: Yes (Hospitalization)
  Sender: FDA-Public Use
  Company Number: US-PFIZER INC-US-GBT-021169

PATIENT
  Age: 21 Year
  Sex: Female

DRUGS (11)
  1. VOXELOTOR [Suspect]
     Active Substance: VOXELOTOR
     Indication: Sickle cell disease
     Dosage: 1500 MG, 1X/DAY
     Dates: start: 20211218, end: 20220525
  2. VOXELOTOR [Suspect]
     Active Substance: VOXELOTOR
     Indication: Anaemia
  3. VOXELOTOR [Suspect]
     Active Substance: VOXELOTOR
     Indication: Sickle cell anaemia with crisis
  4. VOXELOTOR [Suspect]
     Active Substance: VOXELOTOR
     Indication: Pain
  5. ALBUTEROL SULFATE [Concomitant]
     Active Substance: ALBUTEROL SULFATE
     Indication: Dyspnoea
     Dosage: 4 PUFF, 4 TIMES EVERY HOUR (90 MCG/ACTUATION INHALER  )
     Route: 055
     Dates: start: 20171206
  6. ALBUTEROL SULFATE [Concomitant]
     Active Substance: ALBUTEROL SULFATE
     Indication: Wheezing
  7. ALVESCO [Concomitant]
     Active Substance: CICLESONIDE
     Indication: Product used for unknown indication
     Dosage: 2 PUFF, 2X/DAY(160 MCG/ACTUATION INHALER )
     Route: 055
     Dates: start: 20200707
  8. VITAMIN D3 [Concomitant]
     Active Substance: CHOLECALCIFEROL
     Indication: General physical health deterioration
     Dosage: DOSE: 4000.0 U , 1X/DAY
     Route: 048
     Dates: start: 20190107
  9. DROXIA [HYDROXYZINE] [Concomitant]
     Indication: Sickle cell disease
     Dosage: 600 MG
     Route: 048
     Dates: start: 20190307
  10. PEPCID [Concomitant]
     Active Substance: FAMOTIDINE
     Indication: Product used for unknown indication
     Dosage: 20 MG, 1X/DAY
     Route: 048
     Dates: start: 20211031
  11. ACTIGALL [Concomitant]
     Active Substance: URSODIOL
     Indication: Sickle cell disease
     Dosage: 300 MG, 2X/DAY
     Route: 048
     Dates: start: 20211205

REACTIONS (1)
  - Sickle cell anaemia with crisis [Recovered/Resolved]

NARRATIVE: CASE EVENT DATE: 20220525
